FAERS Safety Report 19518428 (Version 1)
Quarter: 2021Q3

REPORT INFORMATION
  Report Type: Report from Study
  Country: US (occurrence: US)
  Receive Date: 20210712
  Receipt Date: 20210712
  Transmission Date: 20211014
  Serious: Yes (Disabling, Other)
  Sender: FDA-Public Use
  Company Number: US-SA-2015SA092913

PATIENT
  Age: 38 Year
  Sex: Female
  Weight: 134.7 kg

DRUGS (8)
  1. TERIFLUNOMIDE. [Suspect]
     Active Substance: TERIFLUNOMIDE
     Indication: MULTIPLE SCLEROSIS
     Dosage: 14 MG, QD
     Route: 048
     Dates: start: 20150528, end: 20170401
  2. GABAPENTIN. [Suspect]
     Active Substance: GABAPENTIN
     Indication: MULTIPLE SCLEROSIS
     Dosage: 2 DF, BID
     Route: 048
     Dates: start: 201608
  3. TERIFLUNOMIDE. [Suspect]
     Active Substance: TERIFLUNOMIDE
     Dosage: 14 MG, QD
     Route: 048
     Dates: start: 20170901
  4. IRON [Concomitant]
     Active Substance: IRON
     Indication: ANAEMIA
     Dosage: 1 DF,QD
     Route: 048
     Dates: start: 2014
  5. NEXPLANON [Concomitant]
     Active Substance: ETONOGESTREL
     Dosage: UNK MG
     Route: 058
  6. AVIANE [Concomitant]
     Active Substance: ETHINYL ESTRADIOL\LEVONORGESTREL
     Indication: CONTRACEPTION
  7. GABAPENTIN. [Suspect]
     Active Substance: GABAPENTIN
     Indication: PARAESTHESIA
  8. ASCORBIC ACID. [Concomitant]
     Active Substance: ASCORBIC ACID
     Dosage: 1 DF,QD
     Dates: start: 2014

REACTIONS (56)
  - Headache [Unknown]
  - Impaired work ability [Unknown]
  - Multiple sclerosis relapse [Not Recovered/Not Resolved]
  - Condition aggravated [Unknown]
  - Arthralgia [Unknown]
  - Spinal flattening [Unknown]
  - Platelet count abnormal [Unknown]
  - Headache [Unknown]
  - Carpal tunnel syndrome [Unknown]
  - Alopecia [Unknown]
  - Amenorrhoea [Unknown]
  - Vision blurred [Unknown]
  - Haemoglobin abnormal [Unknown]
  - Uterine enlargement [Unknown]
  - Back pain [Unknown]
  - Heavy menstrual bleeding [Recovered/Resolved]
  - Depressed mood [Unknown]
  - Cerebral ischaemia [Unknown]
  - Feeling abnormal [Unknown]
  - Optic neuritis [Not Recovered/Not Resolved]
  - Memory impairment [Unknown]
  - Eye pain [Unknown]
  - Burning sensation [Unknown]
  - Major depression [Unknown]
  - Ocular discomfort [Unknown]
  - Joint swelling [Unknown]
  - Pain in extremity [Unknown]
  - Sleep disorder [Unknown]
  - Vitamin B12 abnormal [Unknown]
  - Haemangioma [Unknown]
  - Pain [Unknown]
  - Paraesthesia [Not Recovered/Not Resolved]
  - Chest discomfort [Unknown]
  - Hypokinesia [Unknown]
  - Grip strength decreased [Unknown]
  - Oral pain [Unknown]
  - Intervertebral disc degeneration [Unknown]
  - Cough [Not Recovered/Not Resolved]
  - Dyspnoea [Unknown]
  - Gait disturbance [Unknown]
  - Magnetic resonance imaging abnormal [Unknown]
  - White blood cell disorder [Unknown]
  - Pancreatic enlargement [Unknown]
  - Neck pain [Unknown]
  - Influenza [Not Recovered/Not Resolved]
  - Hypoaesthesia [Unknown]
  - Peripheral swelling [Not Recovered/Not Resolved]
  - Pain [Unknown]
  - Muscular weakness [Unknown]
  - Blood iron abnormal [Unknown]
  - Vitamin D abnormal [Unknown]
  - Seizure [Unknown]
  - Mood swings [Unknown]
  - Intermenstrual bleeding [Unknown]
  - White matter lesion [Unknown]
  - Mean cell volume abnormal [Unknown]

NARRATIVE: CASE EVENT DATE: 2015
